FAERS Safety Report 8126249-2 (Version None)
Quarter: 2012Q1

REPORT INFORMATION
  Report Type: 
  Country: None (occurrence: None)
  Receive Date: 20120209
  Receipt Date: 20120208
  Transmission Date: 20120608
  Serious: Yes (Death, Life-Threatening)
  Sender: FDA-Public Use
  Company Number: PHFR2011GB006743

PATIENT
  Sex: Male

DRUGS (4)
  1. MORPHINE [Concomitant]
     Indication: PAIN
     Route: 048
  2. ZOLEDRONIC ACID [Suspect]
     Dosage: 4 MG, DAILY
     Route: 042
     Dates: start: 20110509, end: 20110531
  3. ENOXAPARIN [Concomitant]
     Indication: PULMONARY EMBOLISM
     Dosage: 120 MG, DAILY
     Route: 058
     Dates: start: 20110414, end: 20110607
  4. AFINITOR [Suspect]
     Indication: DISEASE PROGRESSION
     Dosage: 10 MG, DAILY
     Route: 048
     Dates: start: 20110503, end: 20110607

REACTIONS (3)
  - RENAL FAILURE ACUTE [None]
  - NERVOUSNESS [None]
  - RENAL IMPAIRMENT [None]
